FAERS Safety Report 8792954 (Version 2)
Quarter: 2015Q1

REPORT INFORMATION
  Report Type: Report from Study
  Country: US (occurrence: US)
  Receive Date: 20120918
  Receipt Date: 20150303
  Transmission Date: 20150721
  Serious: Yes (Death)
  Sender: FDA-Public Use
  Company Number: US-ROCHE-1099716

PATIENT
  Sex: Female

DRUGS (3)
  1. AVASTIN [Suspect]
     Active Substance: BEVACIZUMAB
     Indication: BREAST CANCER
     Route: 042
     Dates: start: 20080506
  2. XELODA [Suspect]
     Active Substance: CAPECITABINE
     Indication: NEOPLASM MALIGNANT
     Dosage: 2.0 MG +1.5 MG
     Route: 065
     Dates: start: 200701
  3. ABRAXANE [Concomitant]
     Active Substance: PACLITAXEL

REACTIONS (6)
  - Local swelling [Unknown]
  - Death [Fatal]
  - Decreased appetite [Unknown]
  - Weight decreased [Unknown]
  - Neck pain [Unknown]
  - Neck mass [Unknown]
